FAERS Safety Report 9669584 (Version 1)
Quarter: 2013Q4

REPORT INFORMATION
  Report Type: Spontaneous
  Country: US (occurrence: US)
  Receive Date: 20131105
  Receipt Date: 20131105
  Transmission Date: 20140711
  Serious: Yes (Other)
  Sender: FDA-Public Use
  Company Number: PHHY2013US121507

PATIENT
  Age: 48 Year
  Sex: Male

DRUGS (3)
  1. CHLORTALIDONE [Suspect]
  2. CYTOGAM [Concomitant]
  3. CIDOFOVIR [Concomitant]

REACTIONS (2)
  - Blood creatinine increased [Unknown]
  - Hypovolaemia [Unknown]
